FAERS Safety Report 6175898-X (Version None)
Quarter: 2009Q2

REPORT INFORMATION
  Report Type: 
  Country: None (occurrence: None)
  Receive Date: 20090501
  Receipt Date: 20090421
  Transmission Date: 20091009
  Serious: Yes (Other)
  Sender: FDA-Public Use
  Company Number: US-PFIZER INC-2009202344

PATIENT
  Sex: Female

DRUGS (3)
  1. SERTRALINE HCL [Suspect]
     Indication: DEPRESSION
     Dosage: 25 MG, 1X/DAY
     Dates: start: 20090413
  2. INSULIN [Concomitant]
     Indication: DIABETES MELLITUS
  3. CONTRACEPTIVE, UNSPECIFIED [Concomitant]

REACTIONS (1)
  - BLOOD GLUCOSE DECREASED [None]
